FAERS Safety Report 6993708-5 (Version None)
Quarter: 2010Q3

REPORT INFORMATION
  Report Type: 
  Country: None (occurrence: None)
  Receive Date: 20100917
  Receipt Date: 20071211
  Transmission Date: 20110219
  Serious: Yes (Other)
  Sender: FDA-Public Use
  Company Number: US-ASTRAZENECA-2007UW09217

PATIENT
  Age: 22779 Day
  Sex: Female
  Weight: 83.5 kg

DRUGS (11)
  1. SEROQUEL [Suspect]
     Route: 048
     Dates: start: 20051129
  2. LIPITOR [Concomitant]
     Dosage: 20 - 80 MG
     Route: 048
     Dates: start: 20051129
  3. NEURONTIN [Concomitant]
     Dates: start: 20051129
  4. SYNTHROID [Concomitant]
     Dates: start: 20051129
  5. NEXIUM [Concomitant]
     Dates: start: 20051129
  6. LISINOPRIL [Concomitant]
     Route: 048
     Dates: start: 20041202
  7. LUNESTA [Concomitant]
     Dates: start: 20051129
  8. METOPROLOL [Concomitant]
     Dates: start: 20051129
  9. CELEBREX [Concomitant]
     Dates: start: 20051129
  10. SOMA [Concomitant]
     Indication: PAIN
     Dates: start: 20051129
  11. HUMULIN R [Concomitant]
     Dosage: 70/30, 40 UNITS, TWICE DAILY
     Route: 058
     Dates: start: 20051129

REACTIONS (2)
  - DIABETES MELLITUS [None]
  - DIABETES MELLITUS INADEQUATE CONTROL [None]
